FAERS Safety Report 20574671 (Version 2)
Quarter: 2023Q1

REPORT INFORMATION
  Report Type: Spontaneous
  Country: AU (occurrence: AU)
  Receive Date: 20220309
  Receipt Date: 20230113
  Transmission Date: 20230417
  Serious: Yes (Hospitalization)
  Sender: FDA-Public Use
  Company Number: AU-STRIDES ARCOLAB LIMITED-2022SP002314

PATIENT
  Age: 55 Year
  Sex: Male
  Weight: 125 kg

DRUGS (12)
  1. POTASSIUM CHLORIDE [Interacting]
     Active Substance: POTASSIUM CHLORIDE
     Indication: Product used for unknown indication
     Dosage: 600 MILLIGRAM ORAL SUSTAINED-RELEASE TABLET
     Route: 048
  2. FUROSEMIDE [Interacting]
     Active Substance: FUROSEMIDE
     Indication: Product used for unknown indication
     Dosage: 840 MILLIGRAM
     Route: 048
  3. ISOSORBIDE MONONITRATE [Interacting]
     Active Substance: ISOSORBIDE MONONITRATE
     Indication: Product used for unknown indication
     Dosage: 840 MILLIGRAM
     Route: 048
  4. OMEPRAZOLE [Interacting]
     Active Substance: OMEPRAZOLE
     Indication: Product used for unknown indication
     Dosage: 560 MILLIGRAM
     Route: 048
  5. NICORANDIL [Interacting]
     Active Substance: NICORANDIL
     Indication: Product used for unknown indication
     Dosage: 70 MILLIGRAM
     Route: 048
  6. SIMVASTATIN [Interacting]
     Active Substance: SIMVASTATIN
     Indication: Product used for unknown indication
     Dosage: 280 MILLIGRAM
     Route: 048
  7. TEMAZEPAM [Interacting]
     Active Substance: TEMAZEPAM
     Indication: Product used for unknown indication
     Dosage: 140 MILLIGRAM
     Route: 048
  8. BISOPROLOL [Interacting]
     Active Substance: BISOPROLOL
     Indication: Product used for unknown indication
     Dosage: 35 MILLIGRAM
     Route: 048
  9. SERTRALINE [Interacting]
     Active Substance: SERTRALINE HYDROCHLORIDE
     Indication: Product used for unknown indication
     Dosage: 700 MILLIGRAM
     Route: 048
  10. FENOFIBRATE [Interacting]
     Active Substance: FENOFIBRATE
     Indication: Product used for unknown indication
     Dosage: 1015 MILLIGRAM
     Route: 048
  11. RAMIPRIL [Interacting]
     Active Substance: RAMIPRIL
     Indication: Product used for unknown indication
     Dosage: 70 MILLIGRAM
     Route: 048
  12. ASPIRIN [Interacting]
     Active Substance: ASPIRIN
     Indication: Product used for unknown indication
     Dosage: 700 MILLIGRAM, UNK
     Route: 048

REACTIONS (3)
  - Drug interaction [Unknown]
  - Gastrointestinal disorder [Unknown]
  - Overdose [Unknown]
